FAERS Safety Report 4404481-9 (Version None)
Quarter: 2004Q3

REPORT INFORMATION
  Report Type: 
  Country: None (occurrence: None)
  Receive Date: 20040720
  Receipt Date: 20040708
  Transmission Date: 20050211
  Serious: Yes (Other)
  Sender: FDA-Public Use
  Company Number: US-JNJFOC-20040304413

PATIENT
  Age: 33 Year
  Sex: Male

DRUGS (5)
  1. DURAGESIC [Suspect]
     Indication: PAIN
     Dosage: 75 UG/HR, 1 IN 72 HOUR, TRANSDERMAL
     Route: 062
     Dates: start: 20020801, end: 20040318
  2. BACLOFEN [Concomitant]
  3. NOVANTRONE [Concomitant]
  4. ATIVAN [Concomitant]
  5. OXYCODONE HCL [Concomitant]

REACTIONS (2)
  - CYANOSIS [None]
  - RESPIRATORY ARREST [None]
